FAERS Safety Report 11289107 (Version 2)
Quarter: 2015Q3

REPORT INFORMATION
  Report Type: Spontaneous
  Country: US (occurrence: US)
  Receive Date: 20150721
  Receipt Date: 20150724
  Transmission Date: 20151125
  Serious: Yes (Other)
  Sender: FDA-Public Use
  Company Number: US-PURDUE-USA-2015-0125025

PATIENT
  Age: 49 Year
  Sex: Male

DRUGS (5)
  1. OXYCODONE HYDROCHLORIDE (SIMILAR TO NDA 22-272) [Suspect]
     Active Substance: OXYCODONE HYDROCHLORIDE
     Indication: ACCIDENT
     Dosage: UNK
     Route: 048
     Dates: start: 2009
  2. HYDROCODONE [Suspect]
     Active Substance: HYDROCODONE
     Indication: ACCIDENT
     Dosage: 10 MG, QID
     Route: 048
     Dates: start: 201506
  3. BUTRANS [Suspect]
     Active Substance: BUPRENORPHINE
     Indication: ANALGESIC THERAPY
  4. BUTRANS [Suspect]
     Active Substance: BUPRENORPHINE
     Indication: ACCIDENT
     Dosage: 10 MCG/HR, WEEKLY
     Route: 062
     Dates: start: 201506
  5. HYDROCODONE [Suspect]
     Active Substance: HYDROCODONE
     Indication: BREAKTHROUGH PAIN
     Dosage: 10 MG, UNK
     Route: 048
     Dates: start: 2000

REACTIONS (10)
  - Constipation [Not Recovered/Not Resolved]
  - Application site erythema [Not Recovered/Not Resolved]
  - Back injury [Unknown]
  - Somnolence [Unknown]
  - Breakthrough pain [Unknown]
  - Inappropriate schedule of drug administration [Unknown]
  - Hyperhidrosis [Unknown]
  - Dizziness [Unknown]
  - Wrong technique in product usage process [Unknown]
  - Drug effect decreased [Not Recovered/Not Resolved]

NARRATIVE: CASE EVENT DATE: 201506
